FAERS Safety Report 13055187 (Version 1)
Quarter: 2016Q4

REPORT INFORMATION
  Report Type: Spontaneous
  Country: US (occurrence: US)
  Receive Date: 20161222
  Receipt Date: 20161222
  Transmission Date: 20170207
  Serious: Yes (Hospitalization, Other)
  Sender: FDA-Public Use
  Company Number: US-TRIBUTE PHARMACEUTICALS CANADA INC.-ARA-ZN-20160002

PATIENT
  Age: 74 Year
  Sex: Male

DRUGS (5)
  1. PRINIVIL [Concomitant]
     Active Substance: LISINOPRIL
  2. ZONTIVITY [Suspect]
     Active Substance: VORAPAXAR SULFATE
     Indication: DISSEMINATED INTRAVASCULAR COAGULATION
     Route: 048
     Dates: start: 201505
  3. LASIX [Concomitant]
     Active Substance: FUROSEMIDE
  4. PLETAL [Concomitant]
     Active Substance: CILOSTAZOL
  5. ATORVASTATIN [Concomitant]
     Active Substance: ATORVASTATIN

REACTIONS (2)
  - Liver function test increased [Unknown]
  - Pneumonia [Not Recovered/Not Resolved]
